FAERS Safety Report 19621211 (Version 1)
Quarter: 2021Q3

REPORT INFORMATION
  Report Type: Spontaneous
  Country: US (occurrence: US)
  Receive Date: 20210728
  Receipt Date: 20210728
  Transmission Date: 20211014
  Serious: Yes (Hospitalization)
  Sender: FDA-Public Use
  Company Number: None

PATIENT
  Sex: Female

DRUGS (6)
  1. ENBREL [Suspect]
     Active Substance: ETANERCEPT
     Indication: RHEUMATOID ARTHRITIS
     Dosage: ?          OTHER FREQUENCY:QWK;?
     Route: 058
     Dates: start: 20201111
  2. CEPHALEXIN. [Concomitant]
     Active Substance: CEPHALEXIN
  3. MUPIROCIN. [Concomitant]
     Active Substance: MUPIROCIN
  4. DICLOFENAC [Concomitant]
     Active Substance: DICLOFENAC
  5. TRIAMCINOLON CREAM [Concomitant]
  6. METHOTREXATE. [Concomitant]
     Active Substance: METHOTREXATE

REACTIONS (1)
  - Herpes zoster [None]
